FAERS Safety Report 11980357 (Version 2)
Quarter: 2018Q3

REPORT INFORMATION
  Report Type: Spontaneous
  Country: US (occurrence: US)
  Receive Date: 20160129
  Receipt Date: 20180730
  Transmission Date: 20181010
  Serious: No
  Sender: FDA-Public Use
  Company Number: US-PFIZER INC-2016049683

PATIENT
  Age: 74 Year
  Sex: Female
  Weight: 63.39 kg

DRUGS (2)
  1. METFORMIN [Concomitant]
     Active Substance: METFORMIN HYDROCHLORIDE
     Dosage: UNK
  2. LYRICA [Suspect]
     Active Substance: PREGABALIN
     Indication: FIBROMYALGIA
     Dosage: UNK, 3X/DAY

REACTIONS (4)
  - Pyrexia [Unknown]
  - Nausea [Unknown]
  - Product use issue [Unknown]
  - Chills [Unknown]
